FAERS Safety Report 11519912 (Version 1)
Quarter: 2015Q3

REPORT INFORMATION
  Report Type: Spontaneous
  Country: US (occurrence: None)
  Receive Date: 20150917
  Receipt Date: 20150917
  Transmission Date: 20151125
  Serious: Yes (Other)
  Sender: FDA-Public Use
  Company Number: None

PATIENT
  Age: 46 Year
  Sex: Male

DRUGS (1)
  1. MYCOPHENOLATE 500 [Suspect]
     Active Substance: MYCOPHENOLATE MOFETIL

REACTIONS (1)
  - Visual impairment [None]

NARRATIVE: CASE EVENT DATE: 20150916
